FAERS Safety Report 6848104-8 (Version None)
Quarter: 2010Q3

REPORT INFORMATION
  Report Type: 
  Country: None (occurrence: None)
  Receive Date: 20100716
  Receipt Date: 20100707
  Transmission Date: 20110219
  Serious: Yes (Death, Life-Threatening, Disabling, Other)
  Sender: FDA-Public Use
  Company Number: A0869222A

PATIENT
  Age: 45 Year
  Sex: Female

DRUGS (1)
  1. ZIAGEN [Suspect]
     Indication: HIV INFECTION

REACTIONS (3)
  - DEATH [None]
  - HYPERSENSITIVITY [None]
  - HYPOTENSION [None]
